FAERS Safety Report 7895572 (Version 8)
Quarter: 2014Q3

REPORT INFORMATION
  Report Type: Report from Study
  Country: JP (occurrence: JP)
  Receive Date: 20110412
  Receipt Date: 20140912
  Transmission Date: 20150326
  Serious: Yes (Other)
  Sender: FDA-Public Use
  Company Number: JP-009507513-1104USA00600

PATIENT
  Age: 44 Year
  Sex: Male

DRUGS (13)
  1. BAKTAR [Concomitant]
     Active Substance: SULFAMETHOXAZOLE\TRIMETHOPRIM
     Indication: HIV INFECTION
     Dosage: 1 DF(DOSAGE FORM), QD
     Route: 048
     Dates: start: 20100210, end: 20100622
  2. RETROVIR [Suspect]
     Active Substance: ZIDOVUDINE
     Indication: HIV INFECTION
     Dosage: 400 MG, DOSING FREQUENCY UNKNOWN
     Route: 048
     Dates: end: 20100623
  3. TRUVADA [Concomitant]
     Active Substance: EMTRICITABINE\TENOFOVIR DISOPROXIL FUMARATE
     Indication: HIV INFECTION
     Dosage: 1 DF(DOSAGE FORM), QD
     Route: 048
     Dates: start: 20100225
  4. ISCOTIN [Concomitant]
     Active Substance: ISONIAZID
     Indication: TUBERCULOSIS
     Dosage: 300 MG, QD
     Route: 048
     Dates: start: 20100303, end: 20101103
  5. PYDOXAL [Concomitant]
     Active Substance: PYRIDOXAL
     Indication: VITAMIN SUPPLEMENTATION
     Dosage: 20 MG, QD
     Route: 048
     Dates: start: 20100303, end: 20101103
  6. ISENTRESS [Suspect]
     Active Substance: RALTEGRAVIR POTASSIUM
     Indication: HIV INFECTION
     Dosage: 400 MG, BID
     Route: 048
     Dates: start: 20100225, end: 20100518
  7. MYCOBUTIN [Interacting]
     Active Substance: RIFABUTIN
     Indication: TUBERCULOSIS
     Dosage: 300 MG, QD
     Route: 048
     Dates: start: 20100303, end: 20100517
  8. PYRAMIDE [Concomitant]
     Active Substance: PYRAZINAMIDE
     Indication: TUBERCULOSIS
     Dosage: 1.2 G, QD
     Route: 048
     Dates: start: 20100303, end: 20101103
  9. ISENTRESS [Interacting]
     Active Substance: RALTEGRAVIR POTASSIUM
     Dosage: UNK
  10. MYCOBUTIN [Interacting]
     Active Substance: RIFABUTIN
     Dosage: 150 MG, QD
     Route: 048
     Dates: start: 20100518, end: 20101103
  11. TOLEDOMIN [Concomitant]
     Active Substance: MILNACIPRAN HYDROCHLORIDE
     Indication: DEPRESSION
     Dosage: 25 MG, QD
     Route: 048
     Dates: start: 20100216, end: 20101103
  12. EBUTOL [Concomitant]
     Active Substance: ETHAMBUTOL HYDROCHLORIDE
     Indication: TUBERCULOSIS
     Dosage: 750 MG, QD
     Route: 048
     Dates: start: 20100303, end: 20101103
  13. LENDORMIN [Concomitant]
     Active Substance: BROTIZOLAM
     Indication: INSOMNIA
     Dosage: 0.25 MG, QD
     Route: 048
     Dates: start: 20100122, end: 20100622

REACTIONS (6)
  - Irritability [Recovering/Resolving]
  - Drug interaction [Unknown]
  - Drug resistance [Unknown]
  - Hallucination, auditory [Recovering/Resolving]
  - Anaemia [Recovered/Resolved]
  - Anxiety [Recovering/Resolving]

NARRATIVE: CASE EVENT DATE: 20100306
